FAERS Safety Report 14337618 (Version 1)
Quarter: 2017Q4

REPORT INFORMATION
  Report Type: Spontaneous
  Country: US (occurrence: US)
  Receive Date: 20171228
  Receipt Date: 20171228
  Transmission Date: 20180321
  Serious: No
  Sender: FDA-Public Use
  Company Number: None

PATIENT
  Age: 59 Year
  Sex: Female

DRUGS (1)
  1. PROLIA [Suspect]
     Active Substance: DENOSUMAB
     Dosage: FREQUENCY - Q6MONTHS
     Route: 058
     Dates: start: 20170707, end: 20171228

REACTIONS (3)
  - Urinary tract infection [None]
  - Arthralgia [None]
  - Menstrual disorder [None]

NARRATIVE: CASE EVENT DATE: 20171228
